FAERS Safety Report 9877208 (Version 2)
Quarter: 2014Q1

REPORT INFORMATION
  Report Type: Report from Study
  Country: US (occurrence: US)
  Receive Date: 20140206
  Receipt Date: 20140223
  Transmission Date: 20141002
  Serious: Yes (Hospitalization)
  Sender: FDA-Public Use
  Company Number: US-MERCK-1402USA000392

PATIENT
  Sex: 0

DRUGS (4)
  1. PEGINTRON [Suspect]
     Indication: HIV INFECTION
     Dosage: 1.5 MICROGRAM PER KILOGRAM, QW
  2. PEGINTRON [Suspect]
     Indication: HEPATITIS C
  3. REBETOL [Suspect]
     Indication: HIV INFECTION
     Dosage: WEIGHT-BASED
     Route: 048
  4. REBETOL [Suspect]
     Indication: HEPATITIS C

REACTIONS (1)
  - Psychotic disorder [Unknown]
